FAERS Safety Report 7550622-4 (Version None)
Quarter: 2011Q2

REPORT INFORMATION
  Report Type: 
  Country: None (occurrence: None)
  Receive Date: 20110616
  Receipt Date: 20110604
  Transmission Date: 20111010
  Serious: Yes (Hospitalization, Other)
  Sender: FDA-Public Use
  Company Number: TR-PAR PHARMACEUTICAL, INC-2011SCPR003049

PATIENT
  Age: 14 Year
  Sex: Male

DRUGS (6)
  1. DEXAMETHASONE [Suspect]
     Indication: T-CELL TYPE ACUTE LEUKAEMIA
     Dosage: UNK, UNKNOWN
     Route: 065
  2. NETILMICIN [Concomitant]
     Indication: PNEUMONIA
     Dosage: UNK, UNKNOWN
     Route: 065
  3. CASPOFUNGIN ACETATE [Concomitant]
     Indication: PNEUMONIA
     Dosage: UNK, UNKNOWN
     Route: 065
  4. CYCLOPHOSPHAMIDE [Suspect]
     Indication: T-CELL TYPE ACUTE LEUKAEMIA
     Dosage: UNK, UNKNOWN
     Route: 065
  5. COTRIM [Suspect]
     Indication: PNEUMONIA
     Dosage: UNK, UNKNOWN
     Route: 065
  6. LINEZOLID [Concomitant]
     Indication: PNEUMONIA
     Dosage: UNK, UNKNOWN
     Route: 065

REACTIONS (2)
  - AFFECTIVE DISORDER [None]
  - MANIA [None]
